FAERS Safety Report 9898397 (Version 2)
Quarter: 2014Q2

REPORT INFORMATION
  Report Type: Spontaneous
  Country: IT (occurrence: IT)
  Receive Date: 20140214
  Receipt Date: 20140603
  Transmission Date: 20141212
  Serious: Yes (Hospitalization)
  Sender: FDA-Public Use
  Company Number: IT-PFIZER INC-2014041175

PATIENT
  Age: 63 Year
  Sex: Male
  Weight: 62 kg

DRUGS (1)
  1. VFEND [Suspect]
     Indication: EYE INFECTION FUNGAL
     Dosage: 2 DF, DAILY
     Route: 048
     Dates: start: 20131111, end: 20140110

REACTIONS (3)
  - Abnormal loss of weight [Recovering/Resolving]
  - Hepatitis acute [Recovering/Resolving]
  - Jaundice [Recovering/Resolving]
